FAERS Safety Report 13987545 (Version 1)
Quarter: 2017Q3

REPORT INFORMATION
  Report Type: Spontaneous
  Country: CN (occurrence: CN)
  Receive Date: 20170919
  Receipt Date: 20170919
  Transmission Date: 20171128
  Serious: Yes (Other)
  Sender: FDA-Public Use
  Company Number: CN-ASTRAZENECA-2017SE95606

PATIENT
  Sex: Female
  Weight: 65 kg

DRUGS (1)
  1. ESOMEPRAZOLE MAGNESIUM. [Suspect]
     Active Substance: ESOMEPRAZOLE MAGNESIUM
     Indication: GASTRITIS EROSIVE
     Route: 048
     Dates: start: 20170407, end: 20170407

REACTIONS (2)
  - Nausea [Recovered/Resolved]
  - Oedema mucosal [Recovered/Resolved]
